FAERS Safety Report 6057517-6 (Version None)
Quarter: 2009Q1

REPORT INFORMATION
  Report Type: 
  Country: None (occurrence: None)
  Receive Date: 20090129
  Receipt Date: 20090123
  Transmission Date: 20090719
  Serious: Yes (Hospitalization)
  Sender: FDA-Public Use
  Company Number: DE-ABBOTT-09P-062-0499390-00

PATIENT
  Sex: Female
  Weight: 93 kg

DRUGS (4)
  1. HUMIRA [Suspect]
     Indication: PSORIATIC ARTHROPATHY
     Dates: start: 20070101
  2. HUMIRA [Suspect]
     Dates: start: 20081222
  3. METHOTREXATE [Concomitant]
     Indication: PSORIATIC ARTHROPATHY
     Dates: start: 20000201
  4. CELEBREX [Concomitant]
     Indication: PSORIATIC ARTHROPATHY
     Dosage: OPD

REACTIONS (1)
  - FOOT OPERATION [None]
